FAERS Safety Report 6502051-X (Version None)
Quarter: 2009Q4

REPORT INFORMATION
  Report Type: 
  Country: None (occurrence: None)
  Receive Date: 20091214
  Receipt Date: 20091201
  Transmission Date: 20100525
  Serious: Yes (Disabling)
  Sender: FDA-Public Use
  Company Number: 2009AL007593

PATIENT
  Age: 83 Year
  Sex: Male

DRUGS (7)
  1. RAMIPRIL [Suspect]
     Indication: HYPERTENSION
     Dosage: 10 MG; QD; PO
     Route: 048
     Dates: start: 20090801, end: 20091101
  2. RAMIPRIL [Suspect]
     Indication: PROPHYLAXIS
     Dosage: 10 MG; QD; PO
     Route: 048
     Dates: start: 20090801, end: 20091101
  3. SIMVASTATIN [Concomitant]
  4. ACETYSALICYLIC ACID [Concomitant]
  5. MIRTAZAPINE [Concomitant]
  6. ZOLADEX [Concomitant]
  7. ISRADIPINE [Concomitant]

REACTIONS (4)
  - ABASIA [None]
  - DYSPNOEA [None]
  - PULMONARY THROMBOSIS [None]
  - WHITE BLOOD CELL COUNT INCREASED [None]
